FAERS Safety Report 9199553 (Version 1)
Quarter: 2013Q1

REPORT INFORMATION
  Report Type: Spontaneous
  Country: US (occurrence: US)
  Receive Date: 20130329
  Receipt Date: 20130329
  Transmission Date: 20140127
  Serious: No
  Sender: FDA-Public Use
  Company Number: US-GLAXOSMITHKLINE-A1005231A

PATIENT
  Age: 53 Year
  Sex: Female
  Weight: 63.6 kg

DRUGS (7)
  1. BENLYSTA [Suspect]
     Indication: SYSTEMIC LUPUS ERYTHEMATOSUS
     Route: 042
     Dates: start: 20120812, end: 20121116
  2. LIPITOR [Concomitant]
     Route: 048
  3. PLAQUENIL [Concomitant]
     Dosage: 200MG THREE TIMES PER DAY
     Route: 048
  4. PREDNISONE [Concomitant]
     Dosage: 10MG PER DAY
     Route: 048
  5. DEXILANT [Concomitant]
     Dosage: 60MG PER DAY
     Route: 048
  6. IMURAN [Concomitant]
     Dosage: 50MG TWICE PER DAY
     Route: 048
  7. VITAMIN D2 [Concomitant]
     Route: 048

REACTIONS (5)
  - Myalgia [Recovered/Resolved]
  - Musculoskeletal pain [Unknown]
  - Pain in extremity [Unknown]
  - Pain [Unknown]
  - Arthralgia [Unknown]
